FAERS Safety Report 5126144-7 (Version None)
Quarter: 2006Q3

REPORT INFORMATION
  Report Type: 
  Country: None (occurrence: None)
  Receive Date: 20060823
  Receipt Date: 20051121
  Transmission Date: 20061208
  Serious: Yes (Other)
  Sender: FDA-Public Use
  Company Number: 2005051634

PATIENT
  Age: 72 Year
  Sex: Female
  Weight: 86.1834 kg

DRUGS (6)
  1. NORVASC [Suspect]
     Indication: CHEST PAIN
     Dosage: ORAL
     Route: 048
     Dates: start: 20040601, end: 20040101
  2. OTHER NUTRIENTS (OTHER NUTRIENTS) [Suspect]
     Indication: ILL-DEFINED DISORDER
  3. LEVOXYL [Concomitant]
  4. ATACAND [Concomitant]
  5. MONTELUKAST SODIUM (MONTELUKAST SODIUM) [Concomitant]
  6. XANAX [Concomitant]

REACTIONS (3)
  - CARDIOVASCULAR DISORDER [None]
  - NODULE [None]
  - PURPURA [None]
